FAERS Safety Report 17198838 (Version 1)
Quarter: 2019Q4

REPORT INFORMATION
  Report Type: Report from Study
  Country: US (occurrence: US)
  Receive Date: 20191225
  Receipt Date: 20191225
  Transmission Date: 20200122
  Serious: Yes (Other)
  Sender: FDA-Public Use
  Company Number: US-BAUSCH-BL-2019-056881

PATIENT
  Sex: Female
  Weight: 74 kg

DRUGS (4)
  1. METFORMIN [Concomitant]
     Active Substance: METFORMIN HYDROCHLORIDE
     Indication: DIABETES MELLITUS
  2. PREDNISONE. [Suspect]
     Active Substance: PREDNISONE
     Indication: PRODUCT USED FOR UNKNOWN INDICATION
     Dosage: STARTED ABOUT 6 MONTHS PRIOR TO INITIAL REPORT
     Route: 065
     Dates: start: 2019
  3. CUPRIMINE [Suspect]
     Active Substance: PENICILLAMINE
     Indication: HEPATO-LENTICULAR DEGENERATION
     Dosage: STARTED APPROXIMATELY 2 YEARS FROM INITIAL REPORT, 1 TABLET EVERY DAY AND 1 TABLET EVERY OTHER NIGHT
     Route: 048
     Dates: start: 2017
  4. LIPITOR [Concomitant]
     Active Substance: ATORVASTATIN CALCIUM
     Indication: HYPERTENSION

REACTIONS (3)
  - Weight increased [Recovered/Resolved]
  - Investigation abnormal [Unknown]
  - Systemic lupus erythematosus [Unknown]

NARRATIVE: CASE EVENT DATE: 2019
